FAERS Safety Report 4341128-4 (Version None)
Quarter: 2004Q2

REPORT INFORMATION
  Report Type: 
  Country: None (occurrence: None)
  Receive Date: 20040413
  Receipt Date: 20040331
  Transmission Date: 20050107
  Serious: Yes (Hospitalization)
  Sender: FDA-Public Use
  Company Number: 04P-028-0255768-00

PATIENT
  Age: 51 Year
  Sex: Female

DRUGS (18)
  1. BIAXIN XL [Suspect]
     Indication: RESPIRATORY TRACT INFECTION
     Dosage: 1 GM, 1 IN 1 D, PER ORAL
     Route: 048
     Dates: start: 20030216, end: 20030223
  2. CYCLOSPORINE [Suspect]
     Indication: TRANSPLANT
     Dosage: 100 MG, 2 IN 1 D, PER ORAL
     Route: 048
  3. SIMVASTATIN [Suspect]
     Indication: HYPERCHOLESTEROLAEMIA
     Dosage: 20 MG, 1 IN 1 D, PER ORAL
     Route: 048
     Dates: start: 20021201, end: 20030310
  4. AZATHIOPRINE [Concomitant]
  5. PREDNISONE [Concomitant]
  6. ATENOLOL [Concomitant]
  7. ISOSORBIDE MONOITRATE [Concomitant]
  8. ACETYLSALICYLIC [Concomitant]
  9. SODIUM BICARBONATE [Concomitant]
  10. CALCIUM CARBONATE [Concomitant]
  11. ERGOCALCIFEROL [Concomitant]
  12. ALENDRONATE SODIUM [Concomitant]
  13. TOCOPHEROL CONCENTRATE CAP [Concomitant]
  14. CLONAZEPAM [Concomitant]
  15. ALPRAZOLAM [Concomitant]
  16. ACETAMINOPHEN [Concomitant]
  17. NORFLOXACIN [Concomitant]
  18. MOXIFLOXACIN HCL [Concomitant]

REACTIONS (8)
  - ACTIVITIES OF DAILY LIVING IMPAIRED [None]
  - DRUG INTERACTION [None]
  - FATIGUE [None]
  - IMMUNOSUPPRESSANT DRUG LEVEL INCREASED [None]
  - MOBILITY DECREASED [None]
  - RENAL FAILURE ACUTE [None]
  - RESPIRATORY TRACT INFECTION [None]
  - RHABDOMYOLYSIS [None]
